FAERS Safety Report 9856948 (Version 1)
Quarter: 2014Q1

REPORT INFORMATION
  Report Type: Spontaneous
  Country: US (occurrence: US)
  Receive Date: 20140130
  Receipt Date: 20140130
  Transmission Date: 20141002
  Serious: No
  Sender: FDA-Public Use
  Company Number: US-GILEAD-2014-0093281

PATIENT
  Age: 83 Year
  Sex: Male

DRUGS (2)
  1. RANEXA [Suspect]
     Indication: PRODUCT USED FOR UNKNOWN INDICATION
     Dosage: 500 MG, BID
     Route: 048
  2. AVODART [Concomitant]

REACTIONS (3)
  - Nocturia [Unknown]
  - Benign prostatic hyperplasia [Unknown]
  - Constipation [Unknown]
